FAERS Safety Report 4481357-2 (Version None)
Quarter: 2004Q4

REPORT INFORMATION
  Report Type: 
  Country: None (occurrence: None)
  Receive Date: 20041021
  Receipt Date: 20041008
  Transmission Date: 20050328
  Serious: Yes (Disabling)
  Sender: FDA-Public Use
  Company Number: FR-GLAXOSMITHKLINE-B0347745B

PATIENT
  Sex: Female

DRUGS (2)
  1. LAMICTAL [Suspect]
  2. LAMICTAL [Suspect]

REACTIONS (7)
  - ABDOMINAL DISTENSION [None]
  - DIARRHOEA [None]
  - DRUG EXPOSURE DURING PREGNANCY [None]
  - DRUG EXPOSURE VIA BREAST MILK [None]
  - ENTEROCOLITIS [None]
  - HAEMATOCHEZIA [None]
  - PREMATURE LABOUR [None]
